FAERS Safety Report 4850723-5 (Version None)
Quarter: 2005Q4

REPORT INFORMATION
  Report Type: 
  Country: None (occurrence: None)
  Receive Date: 20051208
  Receipt Date: 20051125
  Transmission Date: 20060501
  Serious: Yes (Hospitalization)
  Sender: FDA-Public Use
  Company Number: 2005161960

PATIENT
  Sex: 0

DRUGS (2)
  1. SULFASALAZINE [Suspect]
     Indication: ARTHRITIS
     Dosage: 2 GRAM ORAL
     Route: 048
     Dates: start: 20040801, end: 20050301
  2. DICLOFENAC SODIUM [Suspect]
     Dosage: 150 MG (50 MG 3 IN 1 D) ORAL
     Route: 048
     Dates: start: 20030101, end: 20050301

REACTIONS (6)
  - ABORTION INDUCED [None]
  - CLEFT PALATE [None]
  - CONGENITAL ANOMALY [None]
  - DRUG EXPOSURE DURING PREGNANCY [None]
  - HEAD DEFORMITY [None]
  - ULTRASOUND ANTENATAL SCREEN ABNORMAL [None]
